FAERS Safety Report 23970038 (Version 18)
Quarter: 2025Q2

REPORT INFORMATION
  Report Type: Spontaneous
  Country: US (occurrence: US)
  Receive Date: 20240613
  Receipt Date: 20250520
  Transmission Date: 20250717
  Serious: Yes (Hospitalization)
  Sender: BIOGEN
  Company Number: US-BIOGEN-2024BI01268281

PATIENT
  Age: 67 Year
  Sex: Male

DRUGS (7)
  1. QALSODY [Suspect]
     Active Substance: TOFERSEN
     Indication: Amyotrophic lateral sclerosis
     Route: 050
     Dates: start: 20240212
  2. EPINEPHRINE [Concomitant]
     Active Substance: EPINEPHRINE
     Indication: Product used for unknown indication
     Route: 050
  3. SYNTHROID [Concomitant]
     Active Substance: LEVOTHYROXINE SODIUM
     Indication: Product used for unknown indication
     Route: 050
  4. LEVOTHROID [Concomitant]
     Active Substance: LEVOTHYROXINE SODIUM
     Indication: Product used for unknown indication
     Route: 050
  5. ZOCOR [Concomitant]
     Active Substance: SIMVASTATIN
     Indication: Product used for unknown indication
     Route: 050
  6. RILUZOLE [Concomitant]
     Active Substance: RILUZOLE
     Indication: Amyotrophic lateral sclerosis
     Dosage: TWICE DAILY
     Route: 050
     Dates: start: 20240926
  7. METHYLCOBALAMIN [Concomitant]
     Active Substance: METHYLCOBALAMIN
     Indication: Amyotrophic lateral sclerosis
     Dosage: TWICE WEEKLY
     Route: 050
     Dates: start: 20240118

REACTIONS (15)
  - Post lumbar puncture syndrome [Recovered/Resolved]
  - SARS-CoV-2 test positive [Recovered/Resolved]
  - Coxiella test positive [Recovered/Resolved]
  - Sepsis [Unknown]
  - Ear disorder [Not Recovered/Not Resolved]
  - Heat exhaustion [Unknown]
  - Dyspnoea [Unknown]
  - Respiratory disorder [Unknown]
  - Inflammation [Unknown]
  - Autoimmune disorder [Unknown]
  - Device dislocation [Unknown]
  - Influenza [Recovered/Resolved]
  - Bronchitis [Recovered/Resolved]
  - Fatigue [Not Recovered/Not Resolved]
  - Radiculopathy [Recovered/Resolved]

NARRATIVE: CASE EVENT DATE: 20240601
